FAERS Safety Report 9854475 (Version 1)
Quarter: 2014Q1

REPORT INFORMATION
  Report Type: Spontaneous
  Country: US (occurrence: US)
  Receive Date: 20140130
  Receipt Date: 20140130
  Transmission Date: 20141002
  Serious: No
  Sender: FDA-Public Use
  Company Number: US-BIOGENIDEC-2014BI006739

PATIENT
  Age: 55 Year
  Sex: Male

DRUGS (5)
  1. TECFIDERA [Suspect]
     Indication: MULTIPLE SCLEROSIS
     Route: 048
     Dates: start: 201401
  2. ALEVE [Concomitant]
  3. CAPTOPRIL [Concomitant]
  4. TRAZODONE HCL [Concomitant]
  5. TYLENOL [Concomitant]

REACTIONS (2)
  - Energy increased [Unknown]
  - Flushing [Unknown]
